FAERS Safety Report 9225436 (Version 1)
Quarter: 2013Q2

REPORT INFORMATION
  Report Type: Spontaneous
  Country: JP (occurrence: JP)
  Receive Date: 20130411
  Receipt Date: 20130411
  Transmission Date: 20140414
  Serious: Yes (Disabling, Other)
  Sender: FDA-Public Use
  Company Number: JP-ASTRAZENECA-2013SE22517

PATIENT
  Age: 79 Year
  Sex: Female

DRUGS (4)
  1. CRESTOR [Suspect]
     Indication: HYPERCHOLESTEROLAEMIA
     Route: 048
     Dates: start: 20090918, end: 20130318
  2. UNSPECIFIED DRUG [Suspect]
     Route: 065
     Dates: end: 201302
  3. RIVOTRIL [Concomitant]
     Route: 048
     Dates: start: 20120301
  4. ABILIT [Concomitant]
     Route: 048
     Dates: start: 20120301

REACTIONS (4)
  - Gait disturbance [Unknown]
  - Blood creatine phosphokinase increased [Recovering/Resolving]
  - Muscular weakness [Unknown]
  - Aspartate aminotransferase increased [Unknown]
